FAERS Safety Report 21063010 (Version 2)
Quarter: 2022Q3

REPORT INFORMATION
  Report Type: Spontaneous
  Country: US (occurrence: US)
  Receive Date: 20220711
  Receipt Date: 20220824
  Transmission Date: 20221027
  Serious: No
  Sender: FDA-Public Use
  Company Number: US-JNJFOC-20220701827

PATIENT
  Age: 63 Year
  Sex: Female
  Weight: 79.450 kg

DRUGS (5)
  1. SPRAVATO [Suspect]
     Active Substance: ESKETAMINE
     Indication: Depression
     Route: 045
  2. TOPAMAX [Concomitant]
     Active Substance: TOPIRAMATE
     Dosage: 5/23 - CURRENT , 25 MG/50 MG
  3. WELLBUTRIN [Concomitant]
     Active Substance: BUPROPION HYDROCHLORIDE
     Dosage: 5/23-CURRENT
  4. PRISTIQ EXTENDED-RELEASE [Concomitant]
     Active Substance: DESVENLAFAXINE SUCCINATE
     Dosage: 5/23- CURRENT
  5. XANAX [Concomitant]
     Active Substance: ALPRAZOLAM
     Dosage: 5/23- CURRENT

REACTIONS (1)
  - COVID-19 [Recovered/Resolved]

NARRATIVE: CASE EVENT DATE: 20220629
